FAERS Safety Report 6412657-4 (Version None)
Quarter: 2009Q4

REPORT INFORMATION
  Report Type: 
  Country: None (occurrence: None)
  Receive Date: 20091023
  Receipt Date: 20091015
  Transmission Date: 20100525
  Serious: Yes (Hospitalization, Disabling, Other)
  Sender: FDA-Public Use
  Company Number: PHHO2003DE09976

PATIENT
  Sex: Male
  Weight: 73.5 kg

DRUGS (2)
  1. ZOLEDRONATE T29581+SOLINF [Suspect]
     Indication: METASTASES TO BONE
     Dosage: 4 MG
     Route: 042
     Dates: start: 20030722
  2. ZOLEDRONIC ACID [Suspect]
     Indication: METASTASES TO BONE
     Dates: start: 20030714

REACTIONS (4)
  - BONE MARROW OEDEMA [None]
  - GAIT DISTURBANCE [None]
  - MALIGNANT NEOPLASM PROGRESSION [None]
  - RADIATION INJURY [None]
